FAERS Safety Report 4874743-X (Version None)
Quarter: 2006Q1

REPORT INFORMATION
  Report Type: 
  Country: None (occurrence: None)
  Receive Date: 20060105
  Receipt Date: 20060105
  Transmission Date: 20060701
  Serious: Yes (Other)
  Sender: FDA-Public Use
  Company Number: None

PATIENT
  Age: 30 Year
  Sex: Female
  Weight: 60.3284 kg

DRUGS (1)
  1. ORTHO TRI-CYCLEN [Suspect]
     Indication: ORAL CONTRACEPTION
     Dosage: 1 TABLET Q DAY
     Dates: start: 20050201, end: 20051201

REACTIONS (3)
  - METRORRHAGIA [None]
  - POLYMENORRHOEA [None]
  - THERAPEUTIC RESPONSE UNEXPECTED WITH DRUG SUBSTITUTION [None]
